FAERS Safety Report 6973381-2 (Version None)
Quarter: 2010Q3

REPORT INFORMATION
  Report Type: 
  Country: None (occurrence: None)
  Receive Date: 20100909
  Receipt Date: 20100831
  Transmission Date: 20110219
  Serious: Yes (Other)
  Sender: FDA-Public Use
  Company Number: PH-PFIZER INC-2009279254

PATIENT
  Age: 27 Year

DRUGS (2)
  1. SULPERAZON [Suspect]
     Indication: PNEUMONIA
     Route: 042
  2. OFLOXACIN [Concomitant]
     Dosage: UNK

REACTIONS (4)
  - DYSPEPSIA [None]
  - DYSPNOEA [None]
  - GASTROOESOPHAGEAL REFLUX DISEASE [None]
  - HYPERHIDROSIS [None]
